FAERS Safety Report 5163775-2 (Version None)
Quarter: 2006Q4

REPORT INFORMATION
  Report Type: 
  Country: None (occurrence: None)
  Receive Date: 20061127
  Receipt Date: 20061127
  Transmission Date: 20070319
  Serious: Yes (Other)
  Sender: FDA-Public Use
  Company Number: None

PATIENT
  Age: 88 Year
  Sex: Male
  Weight: 79.8 kg

DRUGS (1)
  1. LEVAQUIN [Suspect]
     Indication: CARDIAC PACEMAKER INSERTION
     Dosage: 500 MG DAILY IV
     Route: 042
     Dates: start: 20060929, end: 20060929

REACTIONS (3)
  - ERYTHEMA [None]
  - INJECTION SITE ERYTHEMA [None]
  - INJECTION SITE PRURITUS [None]
